FAERS Safety Report 23779994 (Version 10)
Quarter: 2025Q4

REPORT INFORMATION
  Report Type: Spontaneous
  Country: CA (occurrence: CA)
  Receive Date: 20240424
  Receipt Date: 20251030
  Transmission Date: 20260117
  Serious: Yes (Hospitalization, Other)
  Sender: EISAI
  Company Number: CA-Eisai-EC-2024-163961

PATIENT
  Age: 65 Year
  Sex: Female

DRUGS (55)
  1. LEMBOREXANT [Suspect]
     Active Substance: LEMBOREXANT
     Indication: Insomnia
     Dosage: UNKNOWN FREQUENCY
     Route: 048
  2. LEMBOREXANT [Suspect]
     Active Substance: LEMBOREXANT
     Indication: Major depression
     Dosage: DOSE AND FREQUENCY UNKNOWN
     Route: 048
  3. LEMBOREXANT [Suspect]
     Active Substance: LEMBOREXANT
     Dosage: DOSE AND FREQUENCY UNKNOWN
     Route: 048
  4. BUPROPION HYDROCHLORIDE XL [Suspect]
     Active Substance: BUPROPION HYDROCHLORIDE
     Indication: Major depression
  5. BUPROPION HYDROCHLORIDE XL [Suspect]
     Active Substance: BUPROPION HYDROCHLORIDE
     Dosage: FREQUENCY UNKNOWN
  6. BUPROPION HYDROCHLORIDE XL [Suspect]
     Active Substance: BUPROPION HYDROCHLORIDE
  7. BUPROPION HYDROCHLORIDE XL [Suspect]
     Active Substance: BUPROPION HYDROCHLORIDE
  8. BUPROPION HYDROCHLORIDE XL [Suspect]
     Active Substance: BUPROPION HYDROCHLORIDE
  9. BUPROPION HYDROCHLORIDE XL [Suspect]
     Active Substance: BUPROPION HYDROCHLORIDE
  10. CANNABIS SATIVA FLOWERING TOP [Suspect]
     Active Substance: CANNABIS SATIVA FLOWERING TOP
     Indication: Insomnia
     Dosage: DOSE AND FREQUENCY UNKNOWN
  11. CLOMIPRAMINE [Suspect]
     Active Substance: CLOMIPRAMINE
     Indication: Depression
     Dosage: DOSE AND FREQUENCY UNKNOWN
  12. ESCITALOPRAM [Suspect]
     Active Substance: ESCITALOPRAM OXALATE
     Indication: Depression
     Dosage: DOSE AND FREQUENCY UNKNOWN
  13. FLUOXETINE [Suspect]
     Active Substance: FLUOXETINE HYDROCHLORIDE
     Indication: Depression
     Dosage: DOSE AND FREQUENCY UNKNOWN
  14. FLUVOXAMINE [Suspect]
     Active Substance: FLUVOXAMINE
     Indication: Depression
     Dosage: DOSE AND FREQUENCY UNKNOWN
  15. GABAPENTIN [Suspect]
     Active Substance: GABAPENTIN
     Indication: Depression
     Dosage: DOSE AND FREQUENCY UNKNOWN
  16. LORAZEPAM [Suspect]
     Active Substance: LORAZEPAM
     Indication: Major depression
     Dosage: DOSE AND FREQUENCY UNKNOWN
  17. LORAZEPAM [Suspect]
     Active Substance: LORAZEPAM
     Dosage: DOSE AND FREQUENCY UNKNOWN
  18. MIRTAZAPINE [Suspect]
     Active Substance: MIRTAZAPINE
     Indication: Depression
     Dosage: DOSE AND FREQUENCY UNKNOWN
  19. MIRTAZAPINE [Suspect]
     Active Substance: MIRTAZAPINE
     Indication: Anticoagulant therapy
     Dosage: DOSE AND FREQUENCY UNKNOWN
  20. MIRTAZAPINE [Suspect]
     Active Substance: MIRTAZAPINE
  21. MIRTAZAPINE [Suspect]
     Active Substance: MIRTAZAPINE
     Dosage: DOSE AND FREQUENCY UNKNOWN
  22. MIRTAZAPINE [Suspect]
     Active Substance: MIRTAZAPINE
  23. OLANZAPINE [Suspect]
     Active Substance: OLANZAPINE
     Indication: Depression
     Dosage: DOSE AND FREQUENCY UNKNOWN
  24. PAROXETINE [Suspect]
     Active Substance: PAROXETINE
     Indication: Depression
     Dosage: DOSE AND FREQUENCY UNKNOWN
  25. PRAMIPEXOLE [Suspect]
     Active Substance: PRAMIPEXOLE
     Indication: Major depression
  26. PRAMIPEXOLE [Suspect]
     Active Substance: PRAMIPEXOLE
  27. PRAMIPEXOLE [Suspect]
     Active Substance: PRAMIPEXOLE
     Dosage: DOSE AND FREQUENCY UNKNOWN
  28. QUETIAPINE [Suspect]
     Active Substance: QUETIAPINE
     Indication: Depression
     Dosage: DOSE AND FREQUENCY UNKNOWN
  29. QUETIAPINE [Suspect]
     Active Substance: QUETIAPINE
     Dosage: DOSE AND FREQUENCY UNKNOWN
  30. QUETIAPINE [Suspect]
     Active Substance: QUETIAPINE
     Dosage: DOSE AND FREQUENCY UNKNOWN
  31. RISPERIDONE [Suspect]
     Active Substance: RISPERIDONE
     Indication: Depression
     Dosage: DOSE AND FREQUENCY UNKNOWN
  32. VORTIOXETINE [Suspect]
     Active Substance: VORTIOXETINE
     Indication: Major depression
     Dosage: DOSE AND FREQUENCY UNKNOWN
  33. VORTIOXETINE [Suspect]
     Active Substance: VORTIOXETINE
     Dosage: DOSE AND FREQUENCY UNKNOWN
  34. VORTIOXETINE [Suspect]
     Active Substance: VORTIOXETINE
  35. VORTIOXETINE [Suspect]
     Active Substance: VORTIOXETINE
     Dosage: DOSE AND FREQUENCY UNKNOWN
  36. ZOLPIDEM [Suspect]
     Active Substance: ZOLPIDEM TARTRATE
     Indication: Major depression
     Dosage: DOSE AND FREQUENCY UNKNOWN
  37. ZOPICLONE [Suspect]
     Active Substance: ZOPICLONE
     Indication: Depression
     Dosage: DOSE AND FREQUENCY UNKNOWN
  38. APIXABAN [Suspect]
     Active Substance: APIXABAN
     Indication: Deep vein thrombosis
     Dosage: DOSE AND FREQUENCY UNKNOWN
  39. APIXABAN [Suspect]
     Active Substance: APIXABAN
     Indication: Anticoagulant therapy
  40. APIXABAN [Suspect]
     Active Substance: APIXABAN
     Dosage: DOSE AND FREQUENCY UNKNOWN
  41. BREXPIPRAZOLE [Suspect]
     Active Substance: BREXPIPRAZOLE
     Indication: Insomnia
     Dosage: FREQUENCY UNKNOWN
  42. BREXPIPRAZOLE [Suspect]
     Active Substance: BREXPIPRAZOLE
     Indication: Major depression
  43. BREXPIPRAZOLE [Suspect]
     Active Substance: BREXPIPRAZOLE
  44. LAMOTRIGINE [Suspect]
     Active Substance: LAMOTRIGINE
     Indication: Major depression
     Dosage: DOSE AND FREQUENCY UNKNOWN
  45. LAMOTRIGINE [Suspect]
     Active Substance: LAMOTRIGINE
  46. LURASIDONE HYDROCHLORIDE [Suspect]
     Active Substance: LURASIDONE HYDROCHLORIDE
     Indication: Product used for unknown indication
  47. LURASIDONE HYDROCHLORIDE [Suspect]
     Active Substance: LURASIDONE HYDROCHLORIDE
  48. LURASIDONE HYDROCHLORIDE [Suspect]
     Active Substance: LURASIDONE HYDROCHLORIDE
  49. PANTOPRAZOLE [Suspect]
     Active Substance: PANTOPRAZOLE
     Indication: Gastrooesophageal reflux disease
  50. PANTOPRAZOLE [Suspect]
     Active Substance: PANTOPRAZOLE
  51. PANTOPRAZOLE [Suspect]
     Active Substance: PANTOPRAZOLE
     Dosage: DOSE AND FREQUENCY UNKNOWN
  52. VENLAFAXINE HYDROCHLORIDE [Suspect]
     Active Substance: VENLAFAXINE HYDROCHLORIDE
     Indication: Major depression
     Dosage: FREQUENCY UNKNOWN
  53. VENLAFAXINE HYDROCHLORIDE [Suspect]
     Active Substance: VENLAFAXINE HYDROCHLORIDE
     Dosage: FREQUENCY UNKNOWN
  54. VENLAFAXINE HYDROCHLORIDE [Suspect]
     Active Substance: VENLAFAXINE HYDROCHLORIDE
     Dosage: DOSE AND FREQUENCY UNKNOWN
  55. LEVOMEPROMAZINE [Suspect]
     Active Substance: LEVOMEPROMAZINE
     Indication: Depression
     Dosage: DOSE AND FREQUENCY UNKNOWN

REACTIONS (6)
  - Condition aggravated [Recovered/Resolved]
  - Suicidal ideation [Recovered/Resolved]
  - Suicide attempt [Recovered/Resolved]
  - Off label use [Recovered/Resolved]
  - Underdose [Recovered/Resolved]
  - Drug ineffective [Recovered/Resolved]
